FAERS Safety Report 8424351-9 (Version None)
Quarter: 2012Q2

REPORT INFORMATION
  Report Type: 
  Country: None (occurrence: None)
  Receive Date: 20120608
  Receipt Date: 20120104
  Transmission Date: 20120825
  Serious: No
  Sender: FDA-Public Use
  Company Number: US-ASTRAZENECA-2011SE44283

PATIENT
  Age: 53 Year
  Sex: Female

DRUGS (2)
  1. ATROVENT [Concomitant]
  2. PULMICORT FLEXHALER [Suspect]
     Indication: SICK BUILDING SYNDROME
     Dosage: 2 OR 3 PUFF TWO TIMES A DAY, TOTAL DAILY DOSE 540 MCG
     Route: 055
     Dates: start: 20050101

REACTIONS (7)
  - OFF LABEL USE [None]
  - CARDIAC DISORDER [None]
  - BRONCHIAL HYPERREACTIVITY [None]
  - THROAT IRRITATION [None]
  - PULMONARY FUNCTION TEST DECREASED [None]
  - PHARYNGEAL OEDEMA [None]
  - HEART RATE INCREASED [None]
